FAERS Safety Report 10359022 (Version 1)
Quarter: 2014Q3

REPORT INFORMATION
  Report Type: Spontaneous
  Country: GB (occurrence: GB)
  Receive Date: 20140804
  Receipt Date: 20140804
  Transmission Date: 20150326
  Serious: Yes (Hospitalization)
  Sender: FDA-Public Use
  Company Number: GB-ROCHE-1443873

PATIENT
  Age: 59 Year
  Sex: Female

DRUGS (6)
  1. RITUXIMAB [Suspect]
     Active Substance: RITUXIMAB
     Indication: MYOSITIS
     Dosage: 1G ON FIRST DATE, THEN 1G ON THE SECOND DATE
     Route: 042
     Dates: start: 20140509, end: 20140509
  2. RITUXIMAB [Suspect]
     Active Substance: RITUXIMAB
     Indication: MYOSITIS
     Dosage: 1G ON FIRST DATE, THEN 1G ON THE SECOND DATE
     Route: 042
     Dates: start: 20140425, end: 20140425
  3. COTRIMOXAZOLE [Concomitant]
     Active Substance: SULFAMETHOXAZOLE\TRIMETHOPRIM
     Indication: ANTIBIOTIC PROPHYLAXIS
     Route: 065
  4. MYCOPHENOLATE MOFETIL. [Suspect]
     Active Substance: MYCOPHENOLATE MOFETIL
     Indication: MYOSITIS
     Route: 048
     Dates: start: 20140523, end: 20140711
  5. LOSARTAN [Concomitant]
     Active Substance: LOSARTAN
     Indication: HYPERTENSION
     Route: 065
  6. NAPROXEN. [Concomitant]
     Active Substance: NAPROXEN
     Indication: ANALGESIC THERAPY
     Route: 065

REACTIONS (3)
  - Diarrhoea [Unknown]
  - Neutropenia [Recovered/Resolved]
  - Oropharyngeal pain [Unknown]

NARRATIVE: CASE EVENT DATE: 20140711
